FAERS Safety Report 18965194 (Version 2)
Quarter: 2021Q2

REPORT INFORMATION
  Report Type: Spontaneous
  Country: US (occurrence: US)
  Receive Date: 20210303
  Receipt Date: 20210609
  Transmission Date: 20210717
  Serious: Yes (Other)
  Sender: FDA-Public Use
  Company Number: US-IGSA-BIG0013472

PATIENT
  Age: 72 Year
  Sex: Female

DRUGS (2)
  1. GAMUNEX?C [Suspect]
     Active Substance: HUMAN IMMUNOGLOBULIN G
     Indication: DERMATOMYOSITIS
     Dosage: 100 GRAM
     Route: 042
     Dates: start: 20210420
  2. GAMUNEX?C [Suspect]
     Active Substance: HUMAN IMMUNOGLOBULIN G
     Dosage: 2 GRAM PER KILOGRAM, Q.3WK.
     Route: 042
     Dates: start: 2021

REACTIONS (5)
  - Urticaria [Recovered/Resolved]
  - Urticaria [Recovered/Resolved]
  - Rash pruritic [Recovered/Resolved]
  - Pruritus [Recovered/Resolved]
  - Swelling of eyelid [Recovered/Resolved]

NARRATIVE: CASE EVENT DATE: 2021
